FAERS Safety Report 8840801 (Version 1)
Quarter: 2012Q4

REPORT INFORMATION
  Report Type: 
  Country: CN (occurrence: CN)
  Receive Date: 20121015
  Receipt Date: 20121015
  Transmission Date: 20130627
  Serious: Yes (Hospitalization, Other)
  Sender: FDA-Public Use
  Company Number: CN-ROCHE-1144898

PATIENT

DRUGS (3)
  1. BEVACIZUMAB [Suspect]
     Indication: CHOROIDAL NEOVASCULARISATION
     Route: 050
  2. RANIBIZUMAB [Suspect]
     Indication: CHOROIDAL NEOVASCULARISATION
     Dosage: in 0.05ml
     Route: 050
  3. LEVOFLOXACIN [Concomitant]
     Route: 061

REACTIONS (1)
  - Macular hole [Unknown]
